FAERS Safety Report 21296673 (Version 1)
Quarter: 2022Q3

REPORT INFORMATION
  Report Type: Spontaneous
  Country: US (occurrence: None)
  Receive Date: 20220902
  Receipt Date: 20220902
  Transmission Date: 20221026
  Serious: No
  Sender: FDA-Public Use
  Company Number: None

PATIENT
  Age: 52 Year
  Sex: Male
  Weight: 165.56 kg

DRUGS (1)
  1. COSENTYX [Suspect]
     Active Substance: SECUKINUMAB
     Indication: Psoriasis
     Dosage: OTHER QUANTITY : 150MG (1 SYRINGE);?FREQUENCY : MONTHLY;?
     Route: 058
     Dates: start: 201606

REACTIONS (1)
  - COVID-19 [None]
